FAERS Safety Report 8344139-7 (Version None)
Quarter: 2012Q2

REPORT INFORMATION
  Report Type: 
  Country: None (occurrence: None)
  Receive Date: 20120508
  Receipt Date: 20120503
  Transmission Date: 20120825
  Serious: Yes (Other)
  Sender: FDA-Public Use
  Company Number: PHHY2012AU037627

PATIENT
  Sex: Female

DRUGS (1)
  1. ZOLEDRONOC ACID [Suspect]
     Indication: OSTEOPOROSIS
     Dosage: 5 MG, UNK
     Route: 042
     Dates: start: 20120502

REACTIONS (6)
  - CHEST PAIN [None]
  - CHILLS [None]
  - CHEST DISCOMFORT [None]
  - PYREXIA [None]
  - MALAISE [None]
  - INFLUENZA LIKE ILLNESS [None]
